FAERS Safety Report 4332628-1 (Version None)
Quarter: 2004Q2

REPORT INFORMATION
  Report Type: 
  Country: None (occurrence: None)
  Receive Date: 20040401
  Receipt Date: 20040316
  Transmission Date: 20050107
  Serious: Yes (Life-Threatening, Congenital Anomaly)
  Sender: FDA-Public Use
  Company Number: 8005861

PATIENT
  Sex: Male
  Weight: 2250 kg

DRUGS (4)
  1. KEPPRA [Suspect]
     Indication: EPILEPSY
     Dosage: NI TRP
     Route: 064
     Dates: start: 20030701, end: 20040304
  2. CARBAMAZEPINE [Suspect]
     Indication: EPILEPSY
     Dates: start: 20030801, end: 20040304
  3. REBIF [Concomitant]
  4. LIORESAL [Concomitant]

REACTIONS (9)
  - APGAR SCORE LOW [None]
  - CAESAREAN SECTION [None]
  - CONGENITAL AORTIC ANOMALY [None]
  - HAEMATOCHEZIA [None]
  - MATERNAL DRUGS AFFECTING FOETUS [None]
  - PREMATURE BABY [None]
  - PULMONARY VALVE STENOSIS CONGENITAL [None]
  - SMALL FOR DATES BABY [None]
  - TRANSPOSITION OF THE GREAT VESSELS [None]
